FAERS Safety Report 16749420 (Version 3)
Quarter: 2020Q1

REPORT INFORMATION
  Report Type: Spontaneous
  Country: US (occurrence: US)
  Receive Date: 20190828
  Receipt Date: 20200320
  Transmission Date: 20200409
  Serious: Yes (Hospitalization, Other)
  Sender: FDA-Public Use
  Company Number: US-PFIZER INC-2019364390

PATIENT
  Age: 80 Year
  Sex: Male
  Weight: 90.72 kg

DRUGS (2)
  1. REVATIO [Suspect]
     Active Substance: SILDENAFIL CITRATE
     Indication: CARDIAC VALVE DISEASE
     Dosage: 0.5 DF, 3X/DAY (1/2 PILL THREE TIMES A DAY/1/2 TABLET THREE TIMES DAILY)
     Dates: start: 20190722, end: 201908
  2. REVATIO [Suspect]
     Active Substance: SILDENAFIL CITRATE
     Indication: AORTIC VALVE STENOSIS

REACTIONS (5)
  - Pulmonary oedema [Recovering/Resolving]
  - Pleural effusion [Recovering/Resolving]
  - Off label use [Unknown]
  - Dyspnoea [Recovering/Resolving]
  - Product use in unapproved indication [Unknown]

NARRATIVE: CASE EVENT DATE: 201907
